FAERS Safety Report 9504107 (Version 1)
Quarter: 2013Q3

REPORT INFORMATION
  Report Type: Spontaneous
  Country: US (occurrence: US)
  Receive Date: 20130906
  Receipt Date: 20130906
  Transmission Date: 20140515
  Serious: Yes (Other)
  Sender: FDA-Public Use
  Company Number: US-BAYER-2013-106593

PATIENT
  Age: 37 Year
  Sex: Female

DRUGS (2)
  1. YASMIN [Suspect]
  2. LORAZEPAM [Concomitant]
     Dosage: UNK
     Dates: start: 20020929

REACTIONS (2)
  - Transient ischaemic attack [None]
  - Phlebitis superficial [None]
